FAERS Safety Report 9943203 (Version 1)
Quarter: 2014Q1

REPORT INFORMATION
  Report Type: Spontaneous
  Country: US (occurrence: US)
  Receive Date: 20140303
  Receipt Date: 20140303
  Transmission Date: 20141002
  Serious: Yes (Death)
  Sender: FDA-Public Use
  Company Number: US-BANPHARM-20142256

PATIENT
  Age: 39 Year
  Sex: Male

DRUGS (4)
  1. DIPHENHYDRAMINE UNKNOWN PRODUCT [Suspect]
     Route: 048
  2. METHADONE [Suspect]
  3. DULOXETINE [Suspect]
  4. ALPRAZOLAM [Concomitant]

REACTIONS (2)
  - Death [Fatal]
  - Drug abuse [Fatal]
